FAERS Safety Report 5807831-1 (Version None)
Quarter: 2008Q3

REPORT INFORMATION
  Report Type: 
  Country: None (occurrence: None)
  Receive Date: 20080711
  Receipt Date: 20080701
  Transmission Date: 20090109
  Serious: No
  Sender: FDA-Public Use
  Company Number: US-BOEHRINGER INGELHEIM GMBH, GERMANY-2008-BP-07895BP

PATIENT
  Sex: Female

DRUGS (15)
  1. COMBIVENT [Suspect]
     Indication: CHRONIC OBSTRUCTIVE PULMONARY DISEASE
     Route: 055
     Dates: start: 20050101
  2. COMBIVENT [Suspect]
     Indication: EMPHYSEMA
  3. PRAVASTATIN [Concomitant]
     Indication: BLOOD CHOLESTEROL INCREASED
     Route: 048
  4. METOPROLOL [Concomitant]
     Route: 048
  5. LASIX [Concomitant]
     Indication: DIURETIC THERAPY
     Route: 048
  6. NEXIUM [Concomitant]
     Indication: GASTROOESOPHAGEAL REFLUX DISEASE
     Route: 048
  7. ASPIRIN [Concomitant]
     Indication: CARDIOVASCULAR DISORDER
     Route: 048
  8. BONIVA [Concomitant]
     Route: 048
  9. CALCIUM + D [Concomitant]
     Indication: MEDICAL DIET
     Route: 048
  10. ALPRAZOLAM [Concomitant]
  11. DUONEB [Concomitant]
  12. ADVAIR DISKUS 100/50 [Concomitant]
  13. OXYGEN [Concomitant]
  14. NITROGLYCERIN [Concomitant]
  15. MULTI-VITAMINS [Concomitant]

REACTIONS (1)
  - DYSGEUSIA [None]
